FAERS Safety Report 7900979-7 (Version None)
Quarter: 2011Q4

REPORT INFORMATION
  Report Type: 
  Country: None (occurrence: None)
  Receive Date: 20111108
  Receipt Date: 20111104
  Transmission Date: 20120403
  Serious: Yes (Death, Life-Threatening)
  Sender: FDA-Public Use
  Company Number: DE-BAYER-2011-080366

PATIENT
  Age: 55 Year
  Sex: Female
  Weight: 56.9 kg

DRUGS (4)
  1. IRINOTECAN HCL [Suspect]
     Indication: COLORECTAL CANCER METASTATIC
     Dosage: 300 MG, Q2WK
     Route: 042
     Dates: start: 20110704, end: 20110822
  2. FLUOROURACIL [Suspect]
     Indication: COLORECTAL CANCER METASTATIC
     Dosage: 4670 MG, Q2WK LAST DOSE TAKEN 08/09-AUG-2011
     Route: 042
     Dates: start: 20110704, end: 20110822
  3. LEUCOVORIN SODIUM [Suspect]
     Indication: COLORECTAL CANCER METASTATIC
     Dosage: 1250 MG, Q2WK
     Route: 042
     Dates: start: 20110704, end: 20110822
  4. SORAFENIB (RAF KINASE INHIBITOR) [Suspect]
     Indication: COLORECTAL CANCER METASTATIC
     Dosage: 400 MG, BID
     Route: 048
     Dates: start: 20110705, end: 20110819

REACTIONS (3)
  - GENERAL PHYSICAL HEALTH DETERIORATION [None]
  - ALTERED STATE OF CONSCIOUSNESS [None]
  - SEPSIS [None]
